FAERS Safety Report 7622930-X (Version None)
Quarter: 2011Q3

REPORT INFORMATION
  Report Type: 
  Country: None (occurrence: None)
  Receive Date: 20110720
  Receipt Date: 20110711
  Transmission Date: 20111222
  Serious: Yes (Death, Other)
  Sender: FDA-Public Use
  Company Number: AT-GENZYME-FLUD-1001293

PATIENT

DRUGS (16)
  1. FLUDARA [Suspect]
     Dosage: UNK
     Route: 065
  2. FLUDARA [Suspect]
     Dosage: UNK
     Route: 065
  3. RITUXIMAB [Suspect]
     Indication: CHRONIC LYMPHOCYTIC LEUKAEMIA
     Dosage: UNK
     Route: 065
  4. RITUXIMAB [Suspect]
     Dosage: UNK
     Route: 065
  5. RITUXIMAB [Suspect]
     Dosage: 375 MG/M2 UNK
     Route: 065
  6. FLUDARA [Suspect]
     Dosage: UNK
     Route: 065
  7. FLUDARA [Suspect]
     Dosage: UNK
     Route: 065
  8. FLUDARA [Suspect]
     Indication: CHRONIC LYMPHOCYTIC LEUKAEMIA
     Dosage: UNK
     Route: 065
  9. CYCLOPHOSPHAMIDE [Suspect]
     Dosage: UNK
     Route: 065
  10. RITUXIMAB [Suspect]
     Dosage: UNK
     Route: 065
  11. CYCLOPHOSPHAMIDE [Suspect]
     Indication: CHRONIC LYMPHOCYTIC LEUKAEMIA
     Dosage: UNK
     Route: 065
  12. RITUXIMAB [Suspect]
     Dosage: UNK
     Route: 065
  13. CYCLOPHOSPHAMIDE [Suspect]
     Dosage: UNK
     Route: 065
  14. FLUDARA [Suspect]
     Dosage: UNK
     Route: 065
  15. RITUXIMAB [Suspect]
     Dosage: UNK
     Route: 065
  16. RITUXIMAB [Suspect]
     Dosage: UNK
     Route: 065

REACTIONS (2)
  - INFECTION [None]
  - ENCEPHALITIS HERPES [None]
